FAERS Safety Report 9525422 (Version 1)
Quarter: 2013Q1

REPORT INFORMATION
  Report Type: Spontaneous
  Country: US (occurrence: None)
  Receive Date: 20130305
  Receipt Date: 20130305
  Transmission Date: 20140127
  Serious: Yes (Other)
  Sender: FDA-Public Use
  Company Number: 163-21880-12030951

PATIENT
  Age: 51 Year
  Sex: Female
  Weight: 51.44 kg

DRUGS (29)
  1. REVLIMID [Suspect]
     Route: 048
     Dates: start: 20101103, end: 20101227
  2. NEUPOGEN (FILGRASTIM) [Concomitant]
  3. ANTIBIOTICS [Concomitant]
  4. MIRALAX [Concomitant]
  5. CYMBALTA (DULOXETINE HYDROCHLORIDE) [Concomitant]
  6. LEVOTHYROXINE SODIUM [Concomitant]
  7. FOLIC ACID [Concomitant]
  8. PEPCID (FAMOTIDINE) [Concomitant]
  9. VALTREX (VALACICLOVIR HYDROCHLORIDE) [Concomitant]
  10. VERAPAMIL HCL (VERAPAMIL HYDROCHLORIDE) [Concomitant]
  11. BACTRIM DS (BACTRIM) [Concomitant]
  12. OXYCODONE HCL (OXYCODONE HYDROCHLORIDE) [Concomitant]
  13. VITAMIN E (TOCOPHEROL) [Concomitant]
  14. COLACE (DOCUSATE SODIUM) [Concomitant]
  15. FISH OIL [Concomitant]
  16. BIOTIN [Concomitant]
  17. OMEPRAZOLE MAGNESIUM [Concomitant]
  18. MULTIVITAMINS [Concomitant]
  19. SENNA [Concomitant]
  20. ACACIA WOOD (HERBALS NOS W/MINERALS NOS/VITAMINS NOS [Concomitant]
  21. HEPATITIS B (IMMUNOGLOBULIN ANTIHEPATITIS B) [Concomitant]
  22. HEMOPHILUS (HEMOPHILUS INFLUENZAE B VACCINES) [Concomitant]
  23. PNEUMOCOCCUS (PNEUMOCOCCAL VACCINE) [Concomitant]
  24. AUGMENTIN (CLVULIN) [Concomitant]
  25. DEXAMETHASONE [Concomitant]
  26. PREVACID (LANSOPRAZOLE) [Concomitant]
  27. VITAMIN B12 (CYANOCOBALAMIN) [Concomitant]
  28. RESVERATROL [Concomitant]
  29. SENOKOT (SENNA FRUIT) [Concomitant]

REACTIONS (2)
  - Neutropenia [None]
  - Constipation [None]
